FAERS Safety Report 21126296 (Version 1)
Quarter: 2022Q3

REPORT INFORMATION
  Report Type: Spontaneous
  Country: ES (occurrence: ES)
  Receive Date: 20220725
  Receipt Date: 20220725
  Transmission Date: 20221027
  Serious: Yes (Other)
  Sender: FDA-Public Use
  Company Number: None

PATIENT
  Sex: Female

DRUGS (2)
  1. BIKTARVY [Suspect]
     Active Substance: BICTEGRAVIR SODIUM\EMTRICITABINE\TENOFOVIR ALAFENAMIDE FUMARATE
     Indication: Blood HIV RNA increased
     Dosage: 1 COMPRIMIDO CADA 24 HORAS
     Route: 048
     Dates: start: 20210902, end: 20210930
  2. PIFELTRO [Suspect]
     Active Substance: DORAVIRINE
     Indication: HIV test positive
     Dosage: 100 MG, CADA 24 HORAS
     Route: 048
     Dates: start: 20210902, end: 20210930

REACTIONS (6)
  - Fatigue [Recovered/Resolved]
  - Headache [Recovered/Resolved]
  - Pain in extremity [Recovered/Resolved]
  - Nausea [Recovered/Resolved]
  - Pruritus [Recovered/Resolved]
  - Insomnia [Recovered/Resolved]

NARRATIVE: CASE EVENT DATE: 20210902
